FAERS Safety Report 21388801 (Version 1)
Quarter: 2022Q3

REPORT INFORMATION
  Report Type: Report from Study
  Country: NL (occurrence: NL)
  Receive Date: 20220928
  Receipt Date: 20220928
  Transmission Date: 20221026
  Serious: Yes (Other)
  Sender: FDA-Public Use
  Company Number: NL-SUN PHARMACEUTICAL INDUSTRIES LTD-2022R1-356518

PATIENT
  Age: 19 Year
  Sex: Male

DRUGS (1)
  1. PREDNISONE [Suspect]
     Active Substance: PREDNISONE
     Indication: Immunoglobulin G4 related disease
     Dosage: 65 MILLIGRAM, DAILY
     Route: 065

REACTIONS (1)
  - Disease progression [Unknown]
